FAERS Safety Report 19079829 (Version 1)
Quarter: 2021Q1

REPORT INFORMATION
  Report Type: Other
  Country: IT (occurrence: IT)
  Receive Date: 20210331
  Receipt Date: 20210331
  Transmission Date: 20210420
  Serious: Yes (Hospitalization, Other)
  Sender: FDA-Public Use
  Company Number: IT-VALIDUS PHARMACEUTICALS LLC-IT-2021VAL000779

PATIENT

DRUGS (8)
  1. RANITIDINE. [Suspect]
     Active Substance: RANITIDINE
     Indication: HYPERCHLORHYDRIA
     Dosage: 450 MG, TOTAL
     Route: 048
     Dates: start: 20190409, end: 20190409
  2. INSULIN [Concomitant]
     Active Substance: INSULIN NOS
     Indication: PRODUCT USED FOR UNKNOWN INDICATION
     Dosage: UNK
     Route: 065
  3. PAROXETINE HYDROCHLORIDE. [Suspect]
     Active Substance: PAROXETINE HYDROCHLORIDE
     Indication: DEPRESSION
     Dosage: 120 MG, TOTAL
     Route: 048
     Dates: start: 20190409, end: 20190409
  4. TICLOPIDINE HYDROCHLORIDE. [Suspect]
     Active Substance: TICLOPIDINE HYDROCHLORIDE
     Indication: TRANSIENT ISCHAEMIC ATTACK
     Dosage: 3000 MG, TOTAL
     Route: 048
     Dates: start: 20190409, end: 20190409
  5. STILNOX [Suspect]
     Active Substance: ZOLPIDEM TARTRATE
     Indication: INSOMNIA
     Dosage: 60 MG, TOTAL
     Route: 048
     Dates: start: 20190409, end: 20190409
  6. LASIX [Suspect]
     Active Substance: FUROSEMIDE
     Indication: HYPERTENSION
     Dosage: 300 MG, TOTAL
     Route: 048
     Dates: start: 20190409, end: 20190409
  7. QUETIAPINE FUMARATE. [Suspect]
     Active Substance: QUETIAPINE FUMARATE
     Indication: PERSONALITY DISORDER
     Dosage: 1200 MG, TOTAL
     Route: 048
     Dates: start: 20190409, end: 20190409
  8. GABAPENTIN. [Suspect]
     Active Substance: GABAPENTIN
     Indication: DIABETIC NEUROPATHY
     Dosage: 7200 MG, TOTAL
     Route: 048
     Dates: start: 20190409, end: 20190409

REACTIONS (4)
  - Sopor [Recovering/Resolving]
  - Drug abuse [Unknown]
  - Depressed level of consciousness [Recovering/Resolving]
  - Intentional product misuse [Unknown]

NARRATIVE: CASE EVENT DATE: 20190409
